FAERS Safety Report 16861856 (Version 2)
Quarter: 2020Q1

REPORT INFORMATION
  Report Type: Report from Study
  Country: None (occurrence: LB)
  Receive Date: 20190927
  Receipt Date: 20200320
  Transmission Date: 20200409
  Serious: Yes (Hospitalization, Other)
  Sender: FDA-Public Use
  Company Number: LB-ABBVIE-19K-093-2942543-00

PATIENT
  Age: 35 Year
  Sex: Male
  Weight: 90 kg

DRUGS (4)
  1. HUMIRA [Suspect]
     Active Substance: ADALIMUMAB
     Indication: CROHN^S DISEASE
     Route: 058
     Dates: start: 201908, end: 202001
  2. HUMIRA [Suspect]
     Active Substance: ADALIMUMAB
     Route: 058
     Dates: start: 201807, end: 201908
  3. HUMIRA [Suspect]
     Active Substance: ADALIMUMAB
     Dosage: 80MG LOADING DOSE
     Route: 058
     Dates: start: 20180622, end: 20180622
  4. HUMIRA [Suspect]
     Active Substance: ADALIMUMAB
     Indication: CROHN^S DISEASE
     Dosage: 160MG LOADING DOSE
     Route: 058
     Dates: start: 20180608, end: 20180608

REACTIONS (6)
  - Gastrointestinal inflammation [Recovered/Resolved]
  - Intestinal obstruction [Recovered/Resolved]
  - Drug ineffective [Recovered/Resolved]
  - Intestinal obstruction [Recovered/Resolved]
  - Intestinal obstruction [Recovered/Resolved]
  - Drug level decreased [Recovered/Resolved]

NARRATIVE: CASE EVENT DATE: 201908
